FAERS Safety Report 4844835-X (Version None)
Quarter: 2005Q4

REPORT INFORMATION
  Report Type: 
  Country: None (occurrence: None)
  Receive Date: 20051205
  Receipt Date: 20051128
  Transmission Date: 20060501
  Serious: Yes (Hospitalization)
  Sender: FDA-Public Use
  Company Number: US-JNJFOC-20051100871

PATIENT
  Age: 39 Year
  Sex: Female

DRUGS (18)
  1. MOTRIN [Suspect]
     Indication: PAIN
  2. FELDENE [Interacting]
     Indication: PAIN
  3. FMS-034 STUDY MEDICATION [Suspect]
     Indication: DRUG USE FOR UNKNOWN INDICATION
  4. SPIRONOLACTONE [Concomitant]
  5. PRINIVIL [Concomitant]
  6. PRILOSEC [Concomitant]
  7. SINEMET [Concomitant]
  8. SINEMET [Concomitant]
  9. ALBUTEROL [Concomitant]
  10. CLOBETASOL PROPIONATE [Concomitant]
  11. NITROGLYCERIN [Concomitant]
  12. TYLENOL [Concomitant]
  13. PREDNISONE [Concomitant]
  14. OPCON-A [Concomitant]
  15. OPCON-A [Concomitant]
  16. ESTRADIOL INJ [Concomitant]
  17. PROVERA [Concomitant]
  18. LEVOTHROID [Concomitant]

REACTIONS (2)
  - COLITIS ISCHAEMIC [None]
  - DRUG INTERACTION [None]
